FAERS Safety Report 12632802 (Version 2)
Quarter: 2016Q3

REPORT INFORMATION
  Report Type: Spontaneous
  Country: US (occurrence: US)
  Receive Date: 20160808
  Receipt Date: 20160808
  Transmission Date: 20161109
  Serious: No
  Sender: FDA-Public Use
  Company Number: US-BEH-2015057007

PATIENT
  Sex: Female
  Weight: 107 kg

DRUGS (21)
  1. PRAVASTATIN. [Concomitant]
     Active Substance: PRAVASTATIN
  2. HIZENTRA [Suspect]
     Active Substance: HUMAN IMMUNOGLOBULIN G
     Indication: IMMUNODEFICIENCY COMMON VARIABLE
     Route: 058
  3. SINGULAIR [Concomitant]
     Active Substance: MONTELUKAST SODIUM
  4. ISOSORBIDE DN [Concomitant]
  5. LMX [Concomitant]
     Active Substance: LIDOCAINE
  6. FISH OIL [Concomitant]
     Active Substance: FISH OIL
  7. SYSTANE (HYPROMELLOSE 2910 (4000 MPA.S)) [Concomitant]
     Active Substance: HYPROMELLOSE 2910 (4000 MPA.S)
  8. PAZEO [Concomitant]
     Active Substance: OLOPATADINE HYDROCHLORIDE
  9. AZITHROMYCIN ANHYDROUS. [Concomitant]
     Active Substance: AZITHROMYCIN ANHYDROUS
  10. ACETAMINOPHEN. [Concomitant]
     Active Substance: ACETAMINOPHEN
  11. METOPROLOL TARTRATE. [Concomitant]
     Active Substance: METOPROLOL TARTRATE
  12. HIZENTRA [Suspect]
     Active Substance: HUMAN IMMUNOGLOBULIN G
     Route: 058
  13. HIZENTRA [Suspect]
     Active Substance: HUMAN IMMUNOGLOBULIN G
     Route: 058
  14. HYDROCHLOROTHIAZIDE. [Concomitant]
     Active Substance: HYDROCHLOROTHIAZIDE
  15. FLUCONAZOLE. [Concomitant]
     Active Substance: FLUCONAZOLE
  16. EPINEPHRINE. [Concomitant]
     Active Substance: EPINEPHRINE
  17. VITAMIN B12 [Concomitant]
     Active Substance: CYANOCOBALAMIN
  18. KETOTIFEN FUMARATE. [Concomitant]
     Active Substance: KETOTIFEN FUMARATE
  19. ASPIRIN. [Concomitant]
     Active Substance: ASPIRIN
  20. DIPHENHYDRAMINE. [Concomitant]
     Active Substance: DIPHENHYDRAMINE
  21. FLAXSEED [Concomitant]
     Active Substance: FLAX SEED

REACTIONS (1)
  - Scar [Unknown]
